FAERS Safety Report 8622035-5 (Version None)
Quarter: 2012Q3

REPORT INFORMATION
  Report Type: 
  Country: None (occurrence: None)
  Receive Date: 20120823
  Receipt Date: 20120823
  Transmission Date: 20120928
  Serious: Yes (Death)
  Sender: FDA-Public Use
  Company Number: None

PATIENT
  Sex: Female
  Weight: 48.9 kg

DRUGS (3)
  1. RISPERIDONE [Suspect]
     Indication: MENTAL STATUS CHANGES
     Dosage: 1 MG, ONCE, BY MOUTH
     Route: 048
     Dates: start: 20120815
  2. RISPERIDONE [Suspect]
     Indication: CONFUSIONAL STATE
     Dosage: 1 MG, ONCE, BY MOUTH
     Route: 048
     Dates: start: 20120815
  3. RISPERIDONE [Suspect]
     Indication: HALLUCINATION
     Dosage: 1 MG, ONCE, BY MOUTH
     Route: 048
     Dates: start: 20120815

REACTIONS (1)
  - CARDIAC ARREST [None]
